FAERS Safety Report 9165902 (Version 1)
Quarter: 2013Q1

REPORT INFORMATION
  Report Type: Spontaneous
  Country: FR (occurrence: FR)
  Receive Date: 20130315
  Receipt Date: 20130315
  Transmission Date: 20140127
  Serious: Yes (Death)
  Sender: FDA-Public Use
  Company Number: FR-NAPPMUNDI-GBR-2013-0013427

PATIENT
  Sex: Male

DRUGS (1)
  1. OXYNORM [Suspect]
     Indication: PRODUCT USED FOR UNKNOWN INDICATION
     Dosage: 10 MG/ML, Q4H
     Route: 051
     Dates: start: 201301

REACTIONS (1)
  - Malignant neoplasm progression [Fatal]
